FAERS Safety Report 8340687-4 (Version None)
Quarter: 2012Q2

REPORT INFORMATION
  Report Type: 
  Country: None (occurrence: None)
  Receive Date: 20120507
  Receipt Date: 20120426
  Transmission Date: 20120825
  Serious: Yes (Other)
  Sender: FDA-Public Use
  Company Number: JP-ROCHE-1063673

PATIENT
  Sex: Female

DRUGS (2)
  1. HERCEPTIN [Suspect]
     Indication: BREAST CANCER
     Route: 041
  2. HERCEPTIN [Suspect]
     Route: 041

REACTIONS (2)
  - GUILLAIN-BARRE SYNDROME [None]
  - NEUROPATHY PERIPHERAL [None]
